FAERS Safety Report 15287561 (Version 2)
Quarter: 2019Q1

REPORT INFORMATION
  Report Type: Report from Study
  Country: JP (occurrence: JP)
  Receive Date: 20180817
  Receipt Date: 20190307
  Transmission Date: 20190417
  Serious: Yes (Hospitalization)
  Sender: FDA-Public Use
  Company Number: JP-009507513-1807JPN002956J

PATIENT
  Age: 40 Year
  Sex: Male
  Weight: 58 kg

DRUGS (3)
  1. KEYTRUDA [Suspect]
     Active Substance: PEMBROLIZUMAB
     Indication: MALIGNANT MELANOMA
     Dosage: 120 MILLIGRAM, Q3W
     Route: 041
     Dates: start: 20171117, end: 20171117
  2. OXYCODONE [Concomitant]
     Active Substance: OXYCODONE
     Indication: MALIGNANT MELANOMA
     Dosage: 60.0 MILLIGRAM, BID
     Route: 048
  3. DECADRON [Concomitant]
     Active Substance: DEXAMETHASONE
     Indication: SPINAL CORD COMPRESSION
     Dosage: 8.0 MILLIGRAM, QD
     Route: 048
     Dates: start: 20171118, end: 20171126

REACTIONS (1)
  - Hepatic function abnormal [Recovering/Resolving]

NARRATIVE: CASE EVENT DATE: 20171121
